FAERS Safety Report 23304805 (Version 1)
Quarter: 2023Q4

REPORT INFORMATION
  Report Type: Spontaneous
  Country: US (occurrence: US)
  Receive Date: 20231218
  Receipt Date: 20231218
  Transmission Date: 20240110
  Serious: Yes (Death, Other)
  Sender: FDA-Public Use
  Company Number: US-JNJFOC-20231212535

PATIENT

DRUGS (3)
  1. IMBRUVICA [Suspect]
     Active Substance: IBRUTINIB
     Indication: Mantle cell lymphoma
     Route: 048
  2. IXAZOMIB [Suspect]
     Active Substance: IXAZOMIB
     Indication: Mantle cell lymphoma
     Dosage: DAYS 1, 8, AND 15 OF A 28 DAY CYCLE
     Route: 065
  3. IXAZOMIB [Suspect]
     Active Substance: IXAZOMIB
     Indication: Mantle cell lymphoma
     Dosage: DAYS 1, 8, AND 15 OF A 28 DAY CYCLE
     Route: 065

REACTIONS (18)
  - Aortic injury [Fatal]
  - Atrial fibrillation [Unknown]
  - Sepsis [Unknown]
  - Fatigue [Unknown]
  - Hepatic failure [Unknown]
  - Arthralgia [Unknown]
  - Pneumonia [Unknown]
  - Diarrhoea [Unknown]
  - Cardiac failure [Unknown]
  - Muscle spasms [Unknown]
  - Thrombocytopenia [Unknown]
  - Lymphopenia [Unknown]
  - Neutropenia [Unknown]
  - Decreased appetite [Unknown]
  - Hypertension [Unknown]
  - Neuropathy peripheral [Unknown]
  - Rash [Unknown]
  - Syncope [Unknown]
